FAERS Safety Report 8041133 (Version 5)
Quarter: 2012Q4

REPORT INFORMATION
  Report Type: 
  Country: CA (occurrence: CA)
  Receive Date: 20110717
  Receipt Date: 20121009
  Transmission Date: 20130627
  Serious: Yes (Other)
  Sender: FDA-Public Use
  Company Number: PHHY2011CA35901

PATIENT
  Sex: Female

DRUGS (3)
  1. SANDOSTATIN LAR [Suspect]
     Indication: NEUROENDOCRINE TUMOUR
     Dosage: 20 mg, once a month
     Route: 030
     Dates: start: 20110308
  2. SANDOSTATIN LAR [Suspect]
     Dosage: 30 mg, once a month
     Route: 030
  3. ATENOLOL [Concomitant]
     Dosage: UNK UKN, UNK

REACTIONS (15)
  - Diabetes mellitus [Unknown]
  - Blood pressure increased [Unknown]
  - Memory impairment [Unknown]
  - Injection site mass [Unknown]
  - Injection site bruising [Unknown]
  - Hyperhidrosis [Unknown]
  - Back pain [Unknown]
  - Arthralgia [Unknown]
  - Diarrhoea [Unknown]
  - Flatulence [Unknown]
  - Headache [Unknown]
  - Injection site pain [Unknown]
  - Nausea [Unknown]
  - Abdominal pain [Unknown]
  - Fatigue [Unknown]
